FAERS Safety Report 4314775-3 (Version None)
Quarter: 2004Q1

REPORT INFORMATION
  Report Type: 
  Country: None (occurrence: None)
  Receive Date: 20040310
  Receipt Date: 20040303
  Transmission Date: 20041129
  Serious: Yes (Death)
  Sender: FDA-Public Use
  Company Number: US-BRISTOL-MYERS SQUIBB COMPANY-12527180

PATIENT
  Sex: Female

DRUGS (1)
  1. SERZONE [Suspect]
     Route: 064

REACTIONS (6)
  - CARDIAC FAILURE [None]
  - CARDIOMEGALY [None]
  - CONGENITAL ATRIAL SEPTAL DEFECT [None]
  - HEPATOBLASTOMA [None]
  - HYPERADRENALISM [None]
  - IMMATURE RESPIRATORY SYSTEM [None]
